FAERS Safety Report 21686999 (Version 1)
Quarter: 2022Q4

REPORT INFORMATION
  Report Type: Spontaneous
  Country: PL (occurrence: PL)
  Receive Date: 20221206
  Receipt Date: 20221206
  Transmission Date: 20230113
  Serious: Yes (Other)
  Sender: FDA-Public Use
  Company Number: PL-AMGEN-POLSP2022208462

PATIENT
  Sex: Female

DRUGS (4)
  1. BLINCYTO [Suspect]
     Active Substance: BLINATUMOMAB
     Indication: B precursor type acute leukaemia
     Dosage: 15 MICROGRAM/M^2
     Route: 065
  2. VENETOCLAX [Concomitant]
     Active Substance: VENETOCLAX
     Indication: Acute lymphocytic leukaemia
     Dosage: UNK
     Route: 065
  3. FLUDARABINE [Concomitant]
     Active Substance: FLUDARABINE PHOSPHATE
     Indication: Product used for unknown indication
     Dosage: 4X30 MILLIGRAM/M^2 DAYS -7 TO -4 BEFORE CAR-T INFUSION)
     Route: 065
  4. CYCLOPHOSPHAMIDE [Concomitant]
     Active Substance: CYCLOPHOSPHAMIDE
     Indication: Product used for unknown indication
     Dosage: 2X500 MILLIGRAM/M^2 (DAYS -7 TO -6 BEFORE CAR-T INFUSION)
     Route: 065

REACTIONS (2)
  - Acute lymphocytic leukaemia recurrent [Recovered/Resolved]
  - Therapy non-responder [Unknown]
